FAERS Safety Report 12373520 (Version 1)
Quarter: 2016Q2

REPORT INFORMATION
  Report Type: Spontaneous
  Country: ES (occurrence: ES)
  Receive Date: 20160516
  Receipt Date: 20160516
  Transmission Date: 20160815
  Serious: Yes (Hospitalization)
  Sender: FDA-Public Use
  Company Number: ES-IPCA LABORATORIES LIMITED-IPC201605-000413

PATIENT
  Age: 74 Year
  Sex: Female

DRUGS (12)
  1. TRAMADOL. [Concomitant]
     Active Substance: TRAMADOL
  2. PAROXETINE. [Suspect]
     Active Substance: PAROXETINE
  3. ACCENOCOUMAROL [Concomitant]
  4. OMEPRAZOLE. [Concomitant]
     Active Substance: OMEPRAZOLE
  5. RISEDRONIC ACID [Concomitant]
     Active Substance: RISEDRONIC ACID
  6. METOCLOPRAMIDE HYDROCHLORIDE. [Suspect]
     Active Substance: METOCLOPRAMIDE HYDROCHLORIDE
  7. INDAPAMIDE. [Suspect]
     Active Substance: INDAPAMIDE
  8. PARACETAMOL [Concomitant]
     Active Substance: ACETAMINOPHEN
  9. BISOPROLOL [Concomitant]
     Active Substance: BISOPROLOL
  10. SULPIRIDE [Suspect]
     Active Substance: SULPIRIDE
  11. SIMVASTATIN. [Concomitant]
     Active Substance: SIMVASTATIN
  12. ALPRAZOLAM. [Concomitant]
     Active Substance: ALPRAZOLAM

REACTIONS (6)
  - Hypomagnesaemia [Recovered/Resolved]
  - Cardio-respiratory arrest [Unknown]
  - Cardiac failure [Unknown]
  - Hypocalcaemia [Recovered/Resolved]
  - Ventricular fibrillation [Recovered/Resolved]
  - Torsade de pointes [Recovered/Resolved]
